FAERS Safety Report 24400561 (Version 1)
Quarter: 2024Q4

REPORT INFORMATION
  Report Type: Spontaneous
  Country: US (occurrence: US)
  Receive Date: 20241006
  Receipt Date: 20241006
  Transmission Date: 20250115
  Serious: No
  Sender: JOHNSON AND JOHNSON
  Company Number: US-JNJFOC-20240969827

PATIENT
  Age: 16 Year
  Sex: Male

DRUGS (1)
  1. CHILDRENS ZYRTEC [Suspect]
     Active Substance: CETIRIZINE HYDROCHLORIDE
     Indication: Multiple allergies
     Dosage: 2 TABLETS ONE TIME ONLY
     Route: 048
     Dates: start: 20240801

REACTIONS (1)
  - Tic [Not Recovered/Not Resolved]

NARRATIVE: CASE EVENT DATE: 20240101
